FAERS Safety Report 8544605-5 (Version None)
Quarter: 2012Q3

REPORT INFORMATION
  Report Type: 
  Country: None (occurrence: None)
  Receive Date: 20120727
  Receipt Date: 20120724
  Transmission Date: 20120928
  Serious: Yes (Other)
  Sender: FDA-Public Use
  Company Number: US-ROCHE-1061218

PATIENT
  Sex: Male
  Weight: 81.72 kg

DRUGS (1)
  1. ACCUTANE [Suspect]
     Indication: ACNE
     Dates: start: 19880101, end: 19920101

REACTIONS (5)
  - DEPRESSION [None]
  - COLITIS ULCERATIVE [None]
  - INJURY [None]
  - STRESS [None]
  - INFLAMMATORY BOWEL DISEASE [None]
